FAERS Safety Report 20617628 (Version 1)
Quarter: 2022Q1

REPORT INFORMATION
  Report Type: Spontaneous
  Country: US (occurrence: None)
  Receive Date: 20220321
  Receipt Date: 20220321
  Transmission Date: 20220424
  Serious: No
  Sender: FDA-Public Use
  Company Number: None

PATIENT
  Age: 22 Year
  Sex: Female

DRUGS (1)
  1. AUVI-Q [Suspect]
     Active Substance: EPINEPHRINE
     Dosage: FREQUENCY : AS NEEDED;?

REACTIONS (3)
  - Migraine [None]
  - Nausea [None]
  - Endometriosis [None]

NARRATIVE: CASE EVENT DATE: 20220321
